FAERS Safety Report 9238311 (Version 1)
Quarter: 2013Q2

REPORT INFORMATION
  Report Type: Spontaneous
  Country: PH (occurrence: PH)
  Receive Date: 20130418
  Receipt Date: 20130418
  Transmission Date: 20140414
  Serious: Yes (Death)
  Sender: FDA-Public Use
  Company Number: PH-BAYER-2013-015271

PATIENT
  Sex: Female

DRUGS (1)
  1. NEXAVAR [Suspect]

REACTIONS (4)
  - Death [Fatal]
  - Palmar-plantar erythrodysaesthesia syndrome [None]
  - Oral pain [None]
  - Pruritus [None]
